FAERS Safety Report 20139113 (Version 2)
Quarter: 2021Q4

REPORT INFORMATION
  Report Type: Spontaneous
  Country: PK (occurrence: None)
  Receive Date: 20211202
  Receipt Date: 20211214
  Transmission Date: 20220303
  Serious: Yes (Death, Hospitalization)
  Sender: FDA-Public Use
  Company Number: PK-ROCHE-2963266

PATIENT
  Age: 16 Year
  Sex: Female
  Weight: 4.5 kg

DRUGS (1)
  1. CELLCEPT [Suspect]
     Active Substance: MYCOPHENOLATE MOFETIL
     Indication: Product used for unknown indication
     Route: 042

REACTIONS (4)
  - Death [Fatal]
  - Respiratory distress [Unknown]
  - Pericardial effusion [Unknown]
  - Pleural effusion [Unknown]
